FAERS Safety Report 24586253 (Version 1)
Quarter: 2024Q4

REPORT INFORMATION
  Report Type: Spontaneous
  Country: US (occurrence: US)
  Receive Date: 20241106
  Receipt Date: 20241106
  Transmission Date: 20250115
  Serious: Yes (Death)
  Sender: HERON
  Company Number: US-HERON THERAPEUTICS, INC-HRTX-2024-001059

PATIENT
  Age: 58 Year
  Sex: Male

DRUGS (2)
  1. ZYNRELEF [Suspect]
     Active Substance: BUPIVACAINE\MELOXICAM
     Indication: Postoperative analgesia
     Dosage: UNK, SINGLE
  2. ZYNRELEF [Suspect]
     Active Substance: BUPIVACAINE\MELOXICAM
     Indication: Knee arthroplasty

REACTIONS (1)
  - Pulmonary embolism [Fatal]
